FAERS Safety Report 25184994 (Version 1)
Quarter: 2025Q2

REPORT INFORMATION
  Report Type: Spontaneous
  Country: US (occurrence: None)
  Receive Date: 20250410
  Receipt Date: 20250410
  Transmission Date: 20250717
  Serious: Yes (Other)
  Sender: FDA-CTU
  Company Number: None

PATIENT
  Age: 70 Year
  Sex: Female
  Weight: 80.55 kg

DRUGS (2)
  1. XEMBIFY [Suspect]
     Active Substance: HUMAN IMMUNOGLOBULIN G
     Indication: Neuromyopathy
     Route: 058
  2. XEMBIFY [Suspect]
     Active Substance: HUMAN IMMUNOGLOBULIN G
     Indication: Autoimmune disorder

REACTIONS (7)
  - Injection site discomfort [None]
  - Infusion related reaction [None]
  - Injection site erythema [None]
  - Injection site urticaria [None]
  - Injection site swelling [None]
  - Injection site warmth [None]
  - Injection site pain [None]

NARRATIVE: CASE EVENT DATE: 20250409
